FAERS Safety Report 11513709 (Version 1)
Quarter: 2015Q3

REPORT INFORMATION
  Report Type: Spontaneous
  Country: US (occurrence: US)
  Receive Date: 20150903
  Receipt Date: 20150903
  Transmission Date: 20151125
  Serious: No
  Sender: FDA-Public Use
  Company Number: US-ELI_LILLY_AND_COMPANY-US201211001935

PATIENT
  Age: 56 Year
  Sex: Male
  Weight: 92.06 kg

DRUGS (2)
  1. CYMBALTA [Suspect]
     Active Substance: DULOXETINE HYDROCHLORIDE
     Indication: NEUROPATHY PERIPHERAL
     Dosage: 60 MG, BID
  2. CYMBALTA [Suspect]
     Active Substance: DULOXETINE HYDROCHLORIDE
     Dosage: 60 MG, TID

REACTIONS (5)
  - Pain in extremity [Unknown]
  - Prescribed overdose [Unknown]
  - Hypoaesthesia [Unknown]
  - Weight decreased [Unknown]
  - Off label use [Unknown]
